FAERS Safety Report 19467729 (Version 1)
Quarter: 2021Q2

REPORT INFORMATION
  Report Type: Spontaneous
  Country: US (occurrence: US)
  Receive Date: 20210628
  Receipt Date: 20210628
  Transmission Date: 20210717
  Serious: Yes (Other)
  Sender: FDA-Public Use
  Company Number: None

PATIENT
  Age: 67 Year
  Sex: Male
  Weight: 61.2 kg

DRUGS (1)
  1. ERIVEDGE [Suspect]
     Active Substance: VISMODEGIB
     Indication: BASAL CELL CARCINOMA
     Dosage: ?          OTHER FREQUENCY:15 DAYS ON/OFF;?
     Route: 048
     Dates: start: 20200905, end: 20210605

REACTIONS (2)
  - Diarrhoea [None]
  - Hypotrichosis [None]

NARRATIVE: CASE EVENT DATE: 20210605
